FAERS Safety Report 18666183 (Version 1)
Quarter: 2020Q4

REPORT INFORMATION
  Report Type: Report from Study
  Country: BR (occurrence: BR)
  Receive Date: 20201226
  Receipt Date: 20201226
  Transmission Date: 20210114
  Serious: Yes (Other)
  Sender: FDA-Public Use
  Company Number: BR-UCBSA-2020053173

PATIENT
  Age: 46 Year
  Sex: Female
  Weight: 78 kg

DRUGS (4)
  1. VITAMIN D [VITAMIN D NOS] [Concomitant]
     Active Substance: VITAMIN D NOS
     Indication: ANKYLOSING SPONDYLITIS
     Dosage: UNK
     Route: 048
     Dates: start: 2020
  2. ZOLPIDEM [Concomitant]
     Active Substance: ZOLPIDEM TARTRATE
     Indication: INSOMNIA
     Dosage: 10 MILLIGRAM, ONCE DAILY (QD)
     Route: 048
     Dates: start: 2019
  3. OMEGA 3 [FISH OIL] [Concomitant]
     Active Substance: FISH OIL
     Indication: ANKYLOSING SPONDYLITIS
     Dosage: 500 MILLIGRAM, 2X/DAY (BID)
     Route: 048
     Dates: start: 2020
  4. CERTOLIZUMAB PEGOL [Suspect]
     Active Substance: CERTOLIZUMAB PEGOL
     Indication: ANKYLOSING SPONDYLITIS
     Dosage: 400 MILLIGRAM, EV 2 WEEKS(QOW)
     Route: 058
     Dates: start: 20201119

REACTIONS (1)
  - Suspected COVID-19 [Not Recovered/Not Resolved]

NARRATIVE: CASE EVENT DATE: 202012
